FAERS Safety Report 4973138-8 (Version None)
Quarter: 2006Q2

REPORT INFORMATION
  Report Type: 
  Country: None (occurrence: None)
  Receive Date: 20060414
  Receipt Date: 20050414
  Transmission Date: 20061013
  Serious: Yes (Death)
  Sender: FDA-Public Use
  Company Number: US-MERCK-0504USA03126

PATIENT
  Age: 49 Year
  Sex: Male
  Weight: 93 kg

DRUGS (6)
  1. VIOXX [Suspect]
     Indication: ARTHRITIS
     Route: 048
     Dates: start: 20010706, end: 20030228
  2. VIOXX [Suspect]
     Route: 048
     Dates: start: 20010706, end: 20030228
  3. VIOXX [Suspect]
     Route: 048
     Dates: start: 20010706, end: 20030228
  4. VIOXX [Suspect]
     Indication: BACK PAIN
     Route: 048
     Dates: start: 20010706, end: 20030228
  5. VIOXX [Suspect]
     Route: 048
     Dates: start: 20010706, end: 20030228
  6. VIOXX [Suspect]
     Route: 048
     Dates: start: 20010706, end: 20030228

REACTIONS (11)
  - ARTERIOSCLEROSIS CORONARY ARTERY [None]
  - BLOOD GLUCOSE INCREASED [None]
  - CARDIOMEGALY [None]
  - CEREBRAL ARTERIOSCLEROSIS [None]
  - CHOLESTEROSIS [None]
  - CHRONIC OBSTRUCTIVE PULMONARY DISEASE [None]
  - HEPATIC STEATOSIS [None]
  - HYPERTENSION [None]
  - MYOCARDIAL INFARCTION [None]
  - NEPHROSCLEROSIS [None]
  - SINUSITIS [None]
